FAERS Safety Report 6896646-1 (Version None)
Quarter: 2010Q3

REPORT INFORMATION
  Report Type: 
  Country: None (occurrence: None)
  Receive Date: 20100802
  Receipt Date: 20070112
  Transmission Date: 20110219
  Serious: No
  Sender: FDA-Public Use
  Company Number: US-PFIZER INC-2006138046

PATIENT
  Sex: Female
  Weight: 102.06 kg

DRUGS (14)
  1. LYRICA [Suspect]
     Indication: DIABETIC NEUROPATHY
     Route: 048
     Dates: start: 20061001
  2. LIPITOR [Concomitant]
     Route: 048
  3. PREDNISONE [Concomitant]
     Route: 048
  4. CELL CEPT [Concomitant]
     Indication: MYASTHENIA GRAVIS
     Route: 048
  5. CALAN [Concomitant]
     Route: 048
  6. CATAPRES-TTS-1 [Concomitant]
     Route: 061
  7. ACIPHEX [Concomitant]
     Route: 048
  8. ESTRACE [Concomitant]
     Route: 048
  9. VICODIN [Concomitant]
     Route: 048
  10. DILAUDID [Concomitant]
     Route: 048
  11. VOLTAREN [Concomitant]
     Route: 048
  12. KLONOPIN [Concomitant]
     Route: 048
  13. PROZAC [Concomitant]
     Route: 048
  14. INSULIN [Concomitant]

REACTIONS (3)
  - DIABETIC NEUROPATHY [None]
  - MYALGIA [None]
  - NAUSEA [None]
